FAERS Safety Report 7702091-9 (Version None)
Quarter: 2011Q3

REPORT INFORMATION
  Report Type: 
  Country: None (occurrence: None)
  Receive Date: 20110822
  Receipt Date: 20110815
  Transmission Date: 20111222
  Serious: Yes (Other)
  Sender: FDA-Public Use
  Company Number: US-PFIZER INC-2011188267

PATIENT
  Sex: Female

DRUGS (3)
  1. LIPITOR [Suspect]
     Dosage: UNK
  2. GLIPIZIDE [Suspect]
     Dosage: UNK
  3. GLUCOTROL [Suspect]
     Dosage: UNK

REACTIONS (2)
  - RASH GENERALISED [None]
  - DYSPNOEA [None]
